FAERS Safety Report 14380537 (Version 1)
Quarter: 2018Q1

REPORT INFORMATION
  Report Type: Spontaneous
  Country: IT (occurrence: IT)
  Receive Date: 20180112
  Receipt Date: 20180112
  Transmission Date: 20180509
  Serious: Yes (Hospitalization)
  Sender: FDA-Public Use
  Company Number: IT-PFIZER INC-2018014896

PATIENT
  Age: 41 Year
  Sex: Male

DRUGS (1)
  1. SALAZOPYRIN EN [Suspect]
     Active Substance: SULFASALAZINE
     Indication: DERMATITIS
     Route: 048

REACTIONS (3)
  - Product use in unapproved indication [Unknown]
  - Hyperpyrexia [Unknown]
  - Rash [Unknown]

NARRATIVE: CASE EVENT DATE: 20171119
